FAERS Safety Report 8351351 (Version 2)
Quarter: 2013Q4

REPORT INFORMATION
  Report Type: Spontaneous
  Country: US (occurrence: US)
  Receive Date: 20120124
  Receipt Date: 20131230
  Transmission Date: 20140711
  Serious: Yes (Other)
  Sender: FDA-Public Use
  Company Number: US-BAYER-2012-006346

PATIENT
  Age: 49 Year
  Sex: Female

DRUGS (7)
  1. YASMIN [Suspect]
     Dosage: UNK
     Route: 048
     Dates: start: 1999, end: 200911
  2. OCELLA [Suspect]
     Dosage: UNK
     Route: 048
     Dates: start: 1999, end: 200911
  3. INDERAL LA [Concomitant]
     Dosage: 120 MG, UNK
     Dates: start: 20090817
  4. SINGULAIR [Concomitant]
     Dosage: 10 MG, UNK
     Dates: start: 20090916
  5. ADVIL [Concomitant]
     Dosage: UNK
     Dates: start: 20091111
  6. GLUCOSAMINE [Concomitant]
     Dosage: UNK
     Dates: start: 20091111
  7. VITAMIN C [Concomitant]
     Dosage: UNK
     Dates: start: 20091111

REACTIONS (5)
  - Cholecystectomy [None]
  - Pain [None]
  - Injury [None]
  - Emotional distress [None]
  - Cholecystitis acute [None]
